FAERS Safety Report 6744808-6 (Version None)
Quarter: 2010Q2

REPORT INFORMATION
  Report Type: 
  Country: None (occurrence: None)
  Receive Date: 20100527
  Receipt Date: 20100223
  Transmission Date: 20101027
  Serious: No
  Sender: FDA-Public Use
  Company Number: US-BRISTOL-MYERS SQUIBB COMPANY-14989610

PATIENT
  Age: 40 Year
  Sex: Male
  Weight: 127 kg

DRUGS (5)
  1. ONGLYZA [Suspect]
     Indication: DIABETES MELLITUS
     Dates: start: 20100219
  2. METFORMIN HYDROCHLORIDE [Concomitant]
  3. GLIPIZIDE [Concomitant]
  4. ZOLOFT [Concomitant]
  5. PRAVASTATIN SODIUM [Concomitant]

REACTIONS (2)
  - EAR INFECTION [None]
  - RESPIRATORY TRACT INFECTION [None]
